FAERS Safety Report 16458230 (Version 4)
Quarter: 2019Q4

REPORT INFORMATION
  Report Type: Spontaneous
  Country: JP (occurrence: JP)
  Receive Date: 20190620
  Receipt Date: 20191003
  Transmission Date: 20200122
  Serious: Yes (Hospitalization)
  Sender: FDA-Public Use
  Company Number: JP-UCBSA-2019025643

PATIENT
  Age: 72 Year
  Sex: Female

DRUGS (6)
  1. NEUPRO [Suspect]
     Active Substance: ROTIGOTINE
     Dosage: 16 MILLIGRAM
     Route: 062
     Dates: start: 201811
  2. NEUPRO [Suspect]
     Active Substance: ROTIGOTINE
     Dosage: 8 MILLIGRAM, ONCE DAILY (QD)
     Route: 062
     Dates: start: 201812
  3. NEUPRO [Suspect]
     Active Substance: ROTIGOTINE
     Indication: PARKINSON^S DISEASE
     Dosage: 2 MILLIGRAM, ONCE DAILY (QD)
     Route: 062
     Dates: start: 201701
  4. NEUPRO [Suspect]
     Active Substance: ROTIGOTINE
     Dosage: 8 MILLIGRAM, ONCE DAILY (QD)
     Route: 062
     Dates: start: 201903
  5. NEUPRO [Suspect]
     Active Substance: ROTIGOTINE
     Dosage: STRENGTH 1MG UNKNOWN DOSE
     Route: 062
     Dates: start: 201901, end: 201902
  6. NEUPRO [Suspect]
     Active Substance: ROTIGOTINE
     Dosage: 8 MILLIGRAM
     Route: 062
     Dates: start: 201812, end: 20190118

REACTIONS (1)
  - Persecutory delusion [Recovering/Resolving]

NARRATIVE: CASE EVENT DATE: 20181225
